FAERS Safety Report 5076981-2 (Version None)
Quarter: 2006Q3

REPORT INFORMATION
  Report Type: 
  Country: None (occurrence: None)
  Receive Date: 20060810
  Receipt Date: 20060808
  Transmission Date: 20061208
  Serious: Yes (Hospitalization)
  Sender: FDA-Public Use
  Company Number: FR-GLAXOSMITHKLINE-B0433558A

PATIENT
  Age: 92 Year
  Sex: Female

DRUGS (12)
  1. CLAMOXYL [Suspect]
     Indication: PYELONEPHRITIS
     Dosage: 3G PER DAY
     Route: 048
     Dates: start: 20060612, end: 20060613
  2. ROCEPHIN [Suspect]
     Indication: PYELONEPHRITIS
     Dosage: 1G PER DAY
     Route: 042
     Dates: start: 20060610, end: 20060611
  3. XANAX [Suspect]
     Indication: ANXIETY
     Dosage: .75MG PER DAY
     Route: 048
     Dates: start: 20060613, end: 20060618
  4. BACTRIM DS [Suspect]
     Indication: PYELONEPHRITIS
     Dosage: 2UNIT PER DAY
     Route: 048
     Dates: start: 20060612, end: 20060615
  5. OFLOCET [Concomitant]
     Indication: PYELONEPHRITIS
     Dosage: 400MG PER DAY
     Route: 048
     Dates: start: 20060612, end: 20060613
  6. CIFLOX [Concomitant]
     Indication: PYELONEPHRITIS
     Dosage: 1G PER DAY
     Route: 048
  7. OROKEN [Concomitant]
     Route: 065
     Dates: start: 20060525, end: 20060604
  8. NEXIUM [Concomitant]
     Route: 065
  9. TRANSIPEG [Concomitant]
     Route: 065
  10. VIT B12 [Concomitant]
     Route: 065
  11. TOBREX [Concomitant]
     Route: 031
  12. ACETAMINOPHEN [Concomitant]
     Route: 065

REACTIONS (2)
  - GENERALISED ERYTHEMA [None]
  - HENOCH-SCHONLEIN PURPURA [None]
